FAERS Safety Report 9355457 (Version 1)
Quarter: 2013Q2

REPORT INFORMATION
  Report Type: Spontaneous
  Country: GB (occurrence: GB)
  Receive Date: 20130619
  Receipt Date: 20130619
  Transmission Date: 20140414
  Serious: Yes (Other)
  Sender: FDA-Public Use
  Company Number: GB-PFIZER INC-2013182294

PATIENT
  Age: 75 Year
  Sex: Female

DRUGS (4)
  1. DICLOFENAC SODIUM [Suspect]
     Indication: PROCEDURAL SITE REACTION
     Dosage: 75 MG, UNK
     Route: 042
     Dates: start: 20130531, end: 20130531
  2. BENDROFLUMETHIAZIDE [Concomitant]
     Dosage: UNK
  3. PARACETAMOL [Concomitant]
     Dosage: UNK
  4. AMLODIPINE [Concomitant]
     Dosage: UNK

REACTIONS (2)
  - Bronchospasm [Recovered/Resolved]
  - Hypoventilation [Unknown]
